FAERS Safety Report 4299639-6 (Version None)
Quarter: 2004Q1

REPORT INFORMATION
  Report Type: 
  Country: None (occurrence: None)
  Receive Date: 20040217
  Receipt Date: 20040205
  Transmission Date: 20041129
  Serious: Yes (Life-Threatening, Other)
  Sender: FDA-Public Use
  Company Number: 2004192857GB

PATIENT
  Age: 40 Year
  Sex: Female
  Weight: 66 kg

DRUGS (4)
  1. DEPO-PROVERA [Suspect]
     Dosage: 1ST INJECTION, INTRAMUSCULAR; 2ND INJECTION, INTRAMUSCULAR
     Route: 030
     Dates: start: 20030501, end: 20030501
  2. DEPO-PROVERA [Suspect]
     Dosage: 1ST INJECTION, INTRAMUSCULAR; 2ND INJECTION, INTRAMUSCULAR
     Route: 030
     Dates: start: 20030729, end: 20030729
  3. ANAESTHETICS [Concomitant]
  4. VENTOLIN [Concomitant]

REACTIONS (3)
  - ANAPHYLACTIC REACTION [None]
  - CIRCULATORY COLLAPSE [None]
  - RESPIRATORY FAILURE [None]
